FAERS Safety Report 9856683 (Version 1)
Quarter: 2014Q1

REPORT INFORMATION
  Report Type: Spontaneous
  Country: US (occurrence: US)
  Receive Date: 20140130
  Receipt Date: 20140130
  Transmission Date: 20141002
  Serious: Yes (Hospitalization)
  Sender: FDA-Public Use
  Company Number: US-GLAXOSMITHKLINE-A1057856A

PATIENT
  Age: 77 Year
  Sex: Female

DRUGS (4)
  1. REQUIP XL [Suspect]
     Indication: RESTLESS LEGS SYNDROME
     Dosage: 4MG AT NIGHT
     Route: 048
  2. UNSPECIFIED MEDICATION [Concomitant]
     Indication: BLOOD CHOLESTEROL
  3. BLOOD PRESSURE MEDICATION [Concomitant]
  4. ROPINIROLE [Concomitant]
     Dosage: .25MG UNKNOWN

REACTIONS (3)
  - Transient ischaemic attack [Recovered/Resolved]
  - Cerebrovascular accident [Recovered/Resolved]
  - Heart rate decreased [Recovered/Resolved]
